FAERS Safety Report 9673475 (Version 1)
Quarter: 2013Q4

REPORT INFORMATION
  Report Type: Spontaneous
  Country: US (occurrence: US)
  Receive Date: 20131106
  Receipt Date: 20131106
  Transmission Date: 20140711
  Serious: No
  Sender: FDA-Public Use
  Company Number: US-AMGEN-USASP2013074599

PATIENT
  Age: 71 Year
  Sex: Female

DRUGS (4)
  1. ENBREL [Suspect]
     Indication: RHEUMATOID ARTHRITIS
     Dosage: 50 MG, QWK
     Route: 065
     Dates: start: 20131010
  2. PLAQUENIL                          /00072602/ [Concomitant]
     Dosage: UNK
     Route: 065
  3. SULFASALAZINE [Concomitant]
     Dosage: UNK
     Route: 065
  4. IMURAN                             /00001501/ [Concomitant]
     Dosage: UNK
     Route: 065

REACTIONS (3)
  - Back disorder [Not Recovered/Not Resolved]
  - Diarrhoea [Recovered/Resolved]
  - Injection site pain [Recovered/Resolved]
